FAERS Safety Report 6700479-6 (Version None)
Quarter: 2010Q2

REPORT INFORMATION
  Report Type: 
  Country: None (occurrence: None)
  Receive Date: 20100428
  Receipt Date: 20100421
  Transmission Date: 20101027
  Serious: Yes (Other)
  Sender: FDA-Public Use
  Company Number: GXKR2010HK04504

PATIENT
  Age: 17 Year
  Sex: Male

DRUGS (3)
  1. METOCLOPRAMIDE (NGX) [Suspect]
     Indication: VOMITING
     Route: 042
  2. METOCLOPRAMIDE (NGX) [Suspect]
     Indication: DIARRHOEA
  3. OMEPRAZOLE [Concomitant]

REACTIONS (3)
  - BLOOD PRESSURE DECREASED [None]
  - CIRCULATORY COLLAPSE [None]
  - PLASMA EXPANDER TRANSFUSION [None]
